FAERS Safety Report 6141621-8 (Version None)
Quarter: 2009Q2

REPORT INFORMATION
  Report Type: 
  Country: None (occurrence: None)
  Receive Date: 20090402
  Receipt Date: 20090326
  Transmission Date: 20091009
  Serious: Yes (Other)
  Sender: FDA-Public Use
  Company Number: B0539754A

PATIENT
  Sex: Male

DRUGS (4)
  1. SERETIDE [Suspect]
     Indication: ASTHMA
     Dosage: 2PUFF TWICE PER DAY
     Route: 055
     Dates: start: 19990101
  2. VENTOLIN [Suspect]
     Indication: ASTHMA
     Dosage: 200MCG AS REQUIRED
     Route: 055
  3. ATROVENT [Suspect]
     Indication: DRUG USE FOR UNKNOWN INDICATION
     Route: 065
  4. ASPIRIN [Suspect]
     Indication: ASTHMA
     Dosage: 75MG PER DAY
     Route: 048

REACTIONS (8)
  - CARDIOMEGALY [None]
  - CARDIOMYOPATHY [None]
  - COLD SWEAT [None]
  - DYSPNOEA [None]
  - FEELING ABNORMAL [None]
  - NAUSEA [None]
  - PAIN IN EXTREMITY [None]
  - SENSATION OF HEAVINESS [None]
